FAERS Safety Report 10761153 (Version 2)
Quarter: 2015Q1

REPORT INFORMATION
  Report Type: Spontaneous
  Country: US (occurrence: US)
  Receive Date: 20150204
  Receipt Date: 20150225
  Transmission Date: 20150721
  Serious: No
  Sender: FDA-Public Use
  Company Number: US-PFIZER INC-2015041019

PATIENT
  Sex: Female

DRUGS (3)
  1. XELJANZ [Suspect]
     Active Substance: TOFACITINIB CITRATE
     Indication: NEURALGIA
     Dosage: 5MG TABLET TWICE DAILY (DOSAGE REGIMEN REPORTED AS NOT POSITIVE)
     Route: 048
     Dates: start: 201501
  2. XELJANZ [Suspect]
     Active Substance: TOFACITINIB CITRATE
     Indication: HUMAN HERPES VIRUS 6 SEROLOGY POSITIVE
  3. XELJANZ [Suspect]
     Active Substance: TOFACITINIB CITRATE
     Indication: LYME DISEASE

REACTIONS (3)
  - Off label use [Unknown]
  - Therapeutic response unexpected [Unknown]
  - Rash [Unknown]

NARRATIVE: CASE EVENT DATE: 201501
